FAERS Safety Report 9125882 (Version 3)
Quarter: 2014Q1

REPORT INFORMATION
  Report Type: Spontaneous
  Country: US (occurrence: US)
  Receive Date: 20130117
  Receipt Date: 20140113
  Transmission Date: 20141002
  Serious: Yes (Other)
  Sender: FDA-Public Use
  Company Number: US-PFIZER INC-2013018097

PATIENT
  Age: 80 Year
  Sex: Female
  Weight: 89.34 kg

DRUGS (8)
  1. REVATIO [Suspect]
     Indication: PULMONARY ARTERIAL HYPERTENSION
     Dosage: 20 MG, 3X/DAY
     Route: 048
     Dates: start: 20050901
  2. REVATIO [Suspect]
     Dosage: 20 MG, 3X/DAY
     Route: 048
     Dates: start: 20100129
  3. REVATIO [Suspect]
     Dosage: 20 MG, 3X/DAY
     Route: 048
  4. SYNTHROID [Concomitant]
     Indication: THYROID DISORDER
     Dosage: 0.125 MG, DAILY
  5. IRBESARTAN [Concomitant]
     Indication: HYPERTENSION
     Dosage: 300 MG, DAILY
  6. FOLIC ACID [Concomitant]
     Dosage: 1 MG, DAILY
  7. VITAMIN B12 [Concomitant]
     Dosage: UNK, MONTHLY
     Route: 042
  8. AVAPRO [Concomitant]
     Dosage: UNK

REACTIONS (2)
  - Breast cancer female [Not Recovered/Not Resolved]
  - Tooth disorder [Unknown]
